FAERS Safety Report 7029470-X (Version None)
Quarter: 2010Q4

REPORT INFORMATION
  Report Type: 
  Country: None (occurrence: None)
  Receive Date: 20101005
  Receipt Date: 20100927
  Transmission Date: 20110411
  Serious: Yes (Life-Threatening, Hospitalization)
  Sender: FDA-Public Use
  Company Number: JP-AMGEN-US387221

PATIENT
  Sex: Female
  Weight: 51 kg

DRUGS (24)
  1. ENBREL [Suspect]
     Indication: RHEUMATOID ARTHRITIS
     Dosage: LYOPHILIZED 50 MG/WK
     Route: 058
     Dates: start: 20051202, end: 20080913
  2. ENBREL [Suspect]
     Route: 058
     Dates: start: 20080917, end: 20100101
  3. AMARYL [Concomitant]
     Indication: TYPE 2 DIABETES MELLITUS
     Route: 048
  4. PURSENNID [Concomitant]
     Indication: CONSTIPATION
     Dosage: UNSPECIFIED
     Route: 048
  5. LAMISIL [Concomitant]
     Indication: TINEA PEDIS
     Dosage: (TO) OIT
  6. VOLTAREN [Concomitant]
     Indication: PAIN
     Dosage: UNSPECIFIED
     Route: 048
  7. LANOCONAZOLE [Concomitant]
     Dosage: (TO) LIQ
  8. CLARITIN [Concomitant]
     Route: 048
  9. THYRADIN [Concomitant]
     Route: 048
  10. MEXITIL [Concomitant]
     Route: 048
  11. PREDONINE [Concomitant]
     Route: 048
  12. AMLODIPINE BESYLATE [Concomitant]
     Route: 048
  13. MOBIC [Concomitant]
     Route: 048
  14. PARIET [Concomitant]
     Route: 048
  15. ISCOTIN [Concomitant]
     Route: 048
  16. CRESTOR [Concomitant]
     Route: 048
  17. BERIZYM [Concomitant]
     Dosage: 1 DF/DAY
     Route: 048
  18. RHEUMATREX [Concomitant]
     Dates: start: 20010301
  19. RHEUMATREX [Concomitant]
     Dosage: 2 MG UNSPECIFIED FREQUENCY
     Route: 048
  20. EPADEL [Concomitant]
     Dosage: 1800 MG/DAY
     Route: 048
  21. CATLEP [Concomitant]
     Dosage: UNSPECIFIED
     Route: 048
  22. FLUITRAN [Concomitant]
     Indication: OEDEMA
     Dosage: UNSPECIFIED
     Route: 048
  23. EURAX [Concomitant]
     Indication: PRURITUS
     Dosage: (TO) OIT
  24. ADALAT [Concomitant]
     Indication: HYPERTENSION
     Dosage: 1 DF/DAY
     Route: 048

REACTIONS (8)
  - ALTERED STATE OF CONSCIOUSNESS [None]
  - DISSEMINATED INTRAVASCULAR COAGULATION [None]
  - FALL [None]
  - HAEMORRHAGE [None]
  - HIP FRACTURE [None]
  - OPPORTUNISTIC INFECTION [None]
  - PANCYTOPENIA [None]
  - SEPSIS [None]
